FAERS Safety Report 21875702 (Version 2)
Quarter: 2023Q1

REPORT INFORMATION
  Report Type: Other
  Country: US (occurrence: US)
  Receive Date: 20230118
  Receipt Date: 20230206
  Transmission Date: 20230418
  Serious: No
  Sender: FDA-Public Use
  Company Number: US-DECIPHERA PHARMACEUTICALS LLC-2023US000003

PATIENT
  Sex: Male

DRUGS (1)
  1. QINLOCK [Suspect]
     Active Substance: RIPRETINIB
     Indication: Gastrointestinal stromal tumour
     Dosage: 150 MILLIGRAM, QD
     Route: 048
     Dates: start: 20221213

REACTIONS (6)
  - Skin burning sensation [Unknown]
  - Illness [Unknown]
  - Fatigue [Unknown]
  - Nausea [Unknown]
  - Myalgia [Unknown]
  - Product dose omission in error [Unknown]
